FAERS Safety Report 14720730 (Version 2)
Quarter: 2018Q2

REPORT INFORMATION
  Report Type: Report from Study
  Country: US (occurrence: US)
  Receive Date: 20180405
  Receipt Date: 20180418
  Transmission Date: 20180711
  Serious: Yes (Other)
  Sender: FDA-Public Use
  Company Number: US-TEVA-2018-US-877404

PATIENT
  Age: 54 Year
  Sex: Male

DRUGS (2)
  1. ONDANSETRON [Suspect]
     Active Substance: ONDANSETRON
     Dosage: 4 MG SINGLE DOSE
     Route: 042
  2. ZIPRASIDONE. [Interacting]
     Active Substance: ZIPRASIDONE
     Route: 065

REACTIONS (3)
  - Contraindicated product administered [Unknown]
  - Electrocardiogram QT prolonged [Unknown]
  - Drug interaction [Unknown]
